FAERS Safety Report 7434279-9 (Version None)
Quarter: 2011Q2

REPORT INFORMATION
  Report Type: 
  Country: None (occurrence: None)
  Receive Date: 20110425
  Receipt Date: 20110421
  Transmission Date: 20111010
  Serious: No
  Sender: FDA-Public Use
  Company Number: US-PFIZER INC-2011076609

PATIENT
  Sex: Female
  Weight: 81.633 kg

DRUGS (11)
  1. METFORMIN [Concomitant]
     Indication: BLOOD GLUCOSE DECREASED
     Dosage: 500 MG, 1X/DAY
     Route: 048
  2. VITAMIN E [Concomitant]
     Dosage: UNK
  3. ASCORBIC ACID [Concomitant]
     Dosage: UNK
  4. PROMETRIUM [Concomitant]
     Indication: HORMONE LEVEL ABNORMAL
     Dosage: 100 MG, 1X/DAY
  5. VITAMIN D [Concomitant]
     Dosage: UNK
  6. CHANTIX [Suspect]
     Dosage: 1 MG, 2X/DAY
     Route: 048
     Dates: start: 20110101
  7. HYDROCODONE [Concomitant]
     Dosage: UNK
  8. ACIDOPHILUS [Concomitant]
     Dosage: UNK
  9. COENZYME Q10 [Concomitant]
     Dosage: UNK
  10. THYROID TAB [Concomitant]
     Dosage: 60 MG, 1X/DAY
     Route: 048
  11. CHANTIX [Suspect]
     Indication: SMOKING CESSATION THERAPY
     Dosage: 0.5 MG, 1X/DAY
     Route: 048
     Dates: start: 20110325

REACTIONS (2)
  - DYSPEPSIA [None]
  - VISION BLURRED [None]
